FAERS Safety Report 9885589 (Version 1)
Quarter: 2014Q1

REPORT INFORMATION
  Report Type: Spontaneous
  Country: US (occurrence: US)
  Receive Date: 20140210
  Receipt Date: 20140210
  Transmission Date: 20141002
  Serious: No
  Sender: FDA-Public Use
  Company Number: US-GILEAD-2011-0041245

PATIENT
  Sex: Male

DRUGS (2)
  1. VIREAD [Suspect]
     Indication: PRODUCT USED FOR UNKNOWN INDICATION
     Dates: start: 201010, end: 201104
  2. ISENTRESS [Concomitant]
     Dates: end: 201104

REACTIONS (3)
  - Facial paresis [Unknown]
  - Hypoaesthesia [Unknown]
  - Neuropathy peripheral [Recovering/Resolving]
